FAERS Safety Report 13541462 (Version 2)
Quarter: 2017Q2

REPORT INFORMATION
  Report Type: Spontaneous
  Country: US (occurrence: US)
  Receive Date: 20170512
  Receipt Date: 20170615
  Transmission Date: 20170830
  Serious: Yes (Death, Hospitalization)
  Sender: FDA-Public Use
  Company Number: US-PFIZER INC-2017204152

PATIENT
  Age: 81 Year
  Sex: Male

DRUGS (20)
  1. FINASTERIDE. [Concomitant]
     Active Substance: FINASTERIDE
     Dosage: 5 MG, 1X/DAY (1 TAB NOON)
  2. XANAX [Concomitant]
     Active Substance: ALPRAZOLAM
     Dosage: 0.25 MG, 1X/DAY (BEDTIME)
  3. IPRATROPIUM BROMIDE AND ALBUTEROL SULFATE [Concomitant]
     Active Substance: ALBUTEROL SULFATE\IPRATROPIUM BROMIDE
     Dosage: UNK, AS NEEDED (USE IN NEBULIZER 3 XDAY) [IPRATROPIUM BROMIDE 0.5MG]/[ALBUTEROL SULFATE-3MG]
  4. PROVENTIL [Concomitant]
     Active Substance: ALBUTEROL
     Indication: EXPOSURE TO CHEMICAL POLLUTION
     Dosage: UNK, AS NEEDED (MORNING, 2 PUFFS)
     Route: 055
  5. TOPAMAX [Concomitant]
     Active Substance: TOPIRAMATE
     Dosage: 100 MG, 1X/DAY (BEDTIME)
  6. CALCIUM/VITAMIN D [Concomitant]
     Active Substance: CALCIUM\VITAMIN D
     Dosage: 1 DF, 1X/DAY (1 TAB  MORNING) [CALCIUM-600 MG]/[VITAMIN D- 400 UNITS]
  7. TAMSULOSIN [Concomitant]
     Active Substance: TAMSULOSIN
     Dosage: 4 MG, 1X/DAY (EVENING)
  8. FLUTICASONE PROPIONATE. [Concomitant]
     Active Substance: FLUTICASONE PROPIONATE
     Dosage: UNK UNK, AS NEEDED (ONE SPRAY EACH NOSTRIL)
  9. WARFARIN [Concomitant]
     Active Substance: WARFARIN
     Dosage: 7.5 MG, ALTERNATE DAY (NOON, ON SUNDAY TUESDAY AND THURSDAY)
  10. VITAMIN B COMPLEX [Concomitant]
     Active Substance: CYANOCOBALAMIN\DEXPANTHENOL\NIACINAMIDE\PYRIDOXINE HYDROCHLORIDE\RIBOFLAVIN 5^-PHOSPHATE SODIUM\THIAMINE HYDROCHLORIDE\VITAMIN B COMPLEX
     Dosage: 1 DF, 1X/DAY (MORNING)
  11. ASPIRIN. [Concomitant]
     Active Substance: ASPIRIN
     Dosage: 81 MG, 1X/DAY(BEDTIME)
  12. TYLENOL [Concomitant]
     Active Substance: ACETAMINOPHEN
     Dosage: UNK UNK, AS NEEDED (1 OR 2 TABS)
  13. ATORVASTATIN CALCIUM. [Concomitant]
     Active Substance: ATORVASTATIN CALCIUM
     Dosage: 20 MG, 1X/DAY(BEDTIME)
  14. LORATADINE. [Concomitant]
     Active Substance: LORATADINE
     Dosage: 10 MG, AS NEEDED (1 TAB /DAY)
  15. PROVENTIL [Concomitant]
     Active Substance: ALBUTEROL
     Indication: EMPHYSEMA
  16. MORPHINE SULFATE. [Suspect]
     Active Substance: MORPHINE SULFATE
     Dosage: UNK
  17. TOPAMAX [Concomitant]
     Active Substance: TOPIRAMATE
     Indication: SEIZURE
     Dosage: 50 MG, 1X/DAY(1 TAB MORNING)
  18. STRIVERDI RESPIMAT [Concomitant]
     Active Substance: OLODATEROL HYDROCHLORIDE
     Indication: DYSPNOEA
     Dosage: UNK
  19. WARFARIN [Concomitant]
     Active Substance: WARFARIN
     Dosage: 5 MG, ALTERNATE DAY (NOON 1 TAB MONDAY / WEDNESDAY/ FRIDAY/ SATURDAY)
  20. GUAIFENESIN. [Concomitant]
     Active Substance: GUAIFENESIN
     Dosage: 400 MG, AS NEEDED (1 TAB 3 X DAY)

REACTIONS (14)
  - Micturition disorder [Unknown]
  - Constipation [Unknown]
  - Flushing [Unknown]
  - Hyperhidrosis [Unknown]
  - Bone pain [Unknown]
  - Chest pain [Unknown]
  - Urinary tract infection [Unknown]
  - Abdominal discomfort [Unknown]
  - Feeding disorder [Unknown]
  - Overdose [Fatal]
  - Blood glucose increased [Unknown]
  - Intestinal obstruction [Unknown]
  - Dysphagia [Unknown]
  - Pruritus [Unknown]
